FAERS Safety Report 4704647-4 (Version None)
Quarter: 2005Q2

REPORT INFORMATION
  Report Type: 
  Country: None (occurrence: None)
  Receive Date: 20050630
  Receipt Date: 20050622
  Transmission Date: 20051028
  Serious: Yes (Life-Threatening, Hospitalization)
  Sender: FDA-Public Use
  Company Number: DE-MERCK-0506DEU00184

PATIENT
  Age: 63 Year
  Sex: Male

DRUGS (5)
  1. ZOCOR [Suspect]
     Indication: HYPERCHOLESTEROLAEMIA
     Route: 048
     Dates: start: 20050601, end: 20050601
  2. VANCOMYCIN [Concomitant]
     Route: 065
  3. PRIMAXIN [Concomitant]
     Route: 051
  4. METRONIDAZOLE [Concomitant]
     Route: 065
  5. PANTOPRAZOLE SODIUM [Concomitant]
     Route: 065

REACTIONS (2)
  - AORTIC ANEURYSM [None]
  - RHABDOMYOLYSIS [None]
